FAERS Safety Report 16871779 (Version 1)
Quarter: 2019Q4

REPORT INFORMATION
  Report Type: Other
  Country: US (occurrence: US)
  Receive Date: 20191001
  Receipt Date: 20191001
  Transmission Date: 20200122
  Serious: Yes (Other)
  Sender: FDA-Public Use
  Company Number: US-MSN LABORATORIES PRIVATE LIMITED-2075117

PATIENT
  Age: 24 Year
  Sex: Male

DRUGS (1)
  1. MOXIFLOXACIN HYDROCHLORIDE. [Suspect]
     Active Substance: MOXIFLOXACIN HYDROCHLORIDE
     Indication: TUBERCULOSIS
     Route: 065

REACTIONS (4)
  - Lymphadenopathy [Unknown]
  - Bronchial ulceration [Unknown]
  - Lymphadenopathy mediastinal [Unknown]
  - Atelectasis [Unknown]
